FAERS Safety Report 7353600-3 (Version None)
Quarter: 2011Q1

REPORT INFORMATION
  Report Type: 
  Country: None (occurrence: None)
  Receive Date: 20110315
  Receipt Date: 20110307
  Transmission Date: 20110831
  Serious: Yes (Other)
  Sender: FDA-Public Use
  Company Number: US-AMGEN-USASP2011012657

PATIENT

DRUGS (3)
  1. NEUPOGEN [Suspect]
     Indication: MALAISE
  2. EPOGEN [Suspect]
     Indication: MALAISE
  3. PROCRIT [Suspect]
     Indication: MALAISE

REACTIONS (3)
  - RED BLOOD CELL COUNT DECREASED [None]
  - NEOPLASM MALIGNANT [None]
  - WHITE BLOOD CELL COUNT DECREASED [None]
